FAERS Safety Report 20490510 (Version 1)
Quarter: 2022Q1

REPORT INFORMATION
  Report Type: Spontaneous
  Country: US (occurrence: None)
  Receive Date: 20220217
  Receipt Date: 20220217
  Transmission Date: 20220423
  Serious: No
  Sender: FDA-Public Use
  Company Number: None

PATIENT
  Age: 66 Year
  Sex: Female
  Weight: 83.91 kg

DRUGS (7)
  1. IBRANCE [Suspect]
     Active Substance: PALBOCICLIB
     Indication: Breast cancer
     Dosage: FREQUENCY : DAILY;?
     Route: 048
  2. ELIQUIS [Suspect]
     Active Substance: APIXABAN
  3. EXCEDRIN [Suspect]
     Active Substance: ACETAMINOPHEN\ASPIRIN\CAFFEINE
  4. METOPROLOL [Suspect]
     Active Substance: METOPROLOL
  5. TYLENOL EXTRA STRENGTH [Suspect]
     Active Substance: ACETAMINOPHEN
  6. VITAMIN D [Suspect]
     Active Substance: VITAMIN D NOS
  7. CALCIUM [Suspect]
     Active Substance: CALCIUM

REACTIONS (3)
  - Asthenia [None]
  - Cardiac flutter [None]
  - Feeling abnormal [None]
